FAERS Safety Report 4675389-9 (Version None)
Quarter: 2005Q2

REPORT INFORMATION
  Report Type: 
  Country: None (occurrence: None)
  Receive Date: 20050527
  Receipt Date: 20050215
  Transmission Date: 20051028
  Serious: No
  Sender: FDA-Public Use
  Company Number: US-BRISTOL-MYERS SQUIBB COMPANY-12862777

PATIENT
  Age: 17 Year
  Sex: Female

DRUGS (1)
  1. ABILIFY [Suspect]
     Dosage: INITIATED ON 15-MAR-2004 (1/2 TO 1 TABLET OF 20 MG), DECREASED TO 10 MG/DAY ON 11-JAN-2005.
     Dates: start: 20040315

REACTIONS (1)
  - DRUG INEFFECTIVE [None]
